APPROVED DRUG PRODUCT: ALLAY
Active Ingredient: ACETAMINOPHEN; HYDROCODONE BITARTRATE
Strength: 500MG;5MG
Dosage Form/Route: CAPSULE;ORAL
Application: A089907 | Product #001
Applicant: IVAX PHARMACEUTICALS INC
Approved: Jan 13, 1989 | RLD: No | RS: No | Type: DISCN